FAERS Safety Report 4577372-0 (Version None)
Quarter: 2005Q1

REPORT INFORMATION
  Report Type: 
  Country: None (occurrence: None)
  Receive Date: 20050210
  Receipt Date: 20050128
  Transmission Date: 20050727
  Serious: Yes (Hospitalization)
  Sender: FDA-Public Use
  Company Number: AU-GLAXOSMITHKLINE-B0370175A

PATIENT
  Age: 16 Year
  Sex: Female
  Weight: 50 kg

DRUGS (3)
  1. IMIGRAN [Suspect]
     Indication: ILL-DEFINED DISORDER
  2. ZOLOFT [Suspect]
     Indication: ILL-DEFINED DISORDER
  3. MAGNESIUM (UNSPECIFIED) [Concomitant]
     Indication: ILL-DEFINED DISORDER
     Dosage: 1TAB PER DAY
     Route: 048
     Dates: end: 20030717

REACTIONS (8)
  - AMNESIA [None]
  - APNOEA [None]
  - DRUG INTERACTION [None]
  - DYSPNOEA [None]
  - EYE DISORDER [None]
  - EYE ROLLING [None]
  - SWOLLEN TONGUE [None]
  - TREMOR [None]
